FAERS Safety Report 7560346-5 (Version None)
Quarter: 2011Q2

REPORT INFORMATION
  Report Type: 
  Country: None (occurrence: None)
  Receive Date: 20110621
  Receipt Date: 20110613
  Transmission Date: 20111010
  Serious: Yes (Hospitalization, Other)
  Sender: FDA-Public Use
  Company Number: CA-US-EMD SERONO, INC.-7011508

PATIENT
  Sex: Female

DRUGS (7)
  1. REBIF [Suspect]
     Dates: start: 20080530, end: 20100115
  2. REBIF [Suspect]
     Dates: start: 20100118, end: 20100714
  3. REBIF [Suspect]
     Dates: start: 20101212, end: 20110318
  4. ALERTEC [Concomitant]
  5. REBIF [Suspect]
     Indication: MULTIPLE SCLEROSIS
     Dates: start: 20050530, end: 20060401
  6. REBIF [Suspect]
     Dates: start: 20060425, end: 20070908
  7. LYRICA [Concomitant]

REACTIONS (7)
  - NASOPHARYNGITIS [None]
  - DRUG EXPOSURE DURING PREGNANCY [None]
  - PYREXIA [None]
  - MULTIPLE SCLEROSIS RELAPSE [None]
  - ABORTION SPONTANEOUS [None]
  - OPTIC NEURITIS [None]
  - CHILLS [None]
